FAERS Safety Report 8467509-5 (Version None)
Quarter: 2012Q2

REPORT INFORMATION
  Report Type: 
  Country: None (occurrence: None)
  Receive Date: 20120626
  Receipt Date: 20120619
  Transmission Date: 20120825
  Serious: Yes (Hospitalization, Disabling)
  Sender: FDA-Public Use
  Company Number: JP-B.I. PHARMACEUTICALS,INC./RIDGEFIELD-2012-BP-10749NB

PATIENT
  Sex: Male
  Weight: 65.5 kg

DRUGS (6)
  1. LANSOPRAZOLE [Concomitant]
     Dosage: 15 MG
     Route: 048
     Dates: start: 20100723
  2. ENALAPRIL MALEATE [Concomitant]
     Dosage: 5 MG
     Route: 065
     Dates: start: 20100723
  3. DIOVAN [Concomitant]
     Indication: HYPERTENSION
     Dosage: 160 MG
     Route: 048
     Dates: end: 20111201
  4. LIPITOR [Concomitant]
     Indication: DYSLIPIDAEMIA
     Dosage: 10 MG
     Route: 048
     Dates: start: 20100723
  5. PRADAXA [Suspect]
     Indication: AORTIC VALVE REPLACEMENT
     Dosage: 300 MG
     Route: 048
     Dates: start: 20110301, end: 20111201
  6. CARVEDILOL [Concomitant]
     Dosage: 10 MG
     Route: 048
     Dates: start: 20100723

REACTIONS (2)
  - CEREBRAL INFARCTION [None]
  - DRUG EFFECT DECREASED [None]
